FAERS Safety Report 8518594-3 (Version None)
Quarter: 2012Q3

REPORT INFORMATION
  Report Type: 
  Country: None (occurrence: None)
  Receive Date: 20120718
  Receipt Date: 20111221
  Transmission Date: 20120928
  Serious: No
  Sender: FDA-Public Use
  Company Number: US-BRISTOL-MYERS SQUIBB COMPANY-14924880

PATIENT
  Age: 89 Year
  Sex: Female
  Weight: 63 kg

DRUGS (7)
  1. AMIODARONE HCL [Concomitant]
  2. FOLBIC [Concomitant]
  3. MULTAQ [Concomitant]
  4. COUMADIN [Suspect]
     Indication: ATRIAL FIBRILLATION
     Dosage: 2MG 4 DAYS/WK 3MG 3 DAYS/WK
     Route: 048
     Dates: start: 20070101
  5. OMEPRAZOLE [Concomitant]
  6. PRILOSEC [Concomitant]
  7. TYLENOL [Concomitant]

REACTIONS (2)
  - SKIN DISCOLOURATION [None]
  - INTERNATIONAL NORMALISED RATIO FLUCTUATION [None]
